FAERS Safety Report 12306457 (Version 1)
Quarter: 2016Q2

REPORT INFORMATION
  Report Type: Spontaneous
  Country: US (occurrence: US)
  Receive Date: 20160426
  Receipt Date: 20160426
  Transmission Date: 20160815
  Serious: No
  Sender: FDA-Public Use
  Company Number: US-OREXO US, INC.-ORE201603-000040

PATIENT
  Sex: Male

DRUGS (1)
  1. ZUBSOLV [Suspect]
     Active Substance: BUPRENORPHINE HYDROCHLORIDE\NALOXONE HYDROCHLORIDE
     Dosage: 2.9 MG/0.71MG
     Route: 060

REACTIONS (4)
  - Vomiting [Unknown]
  - Drug withdrawal syndrome [Unknown]
  - Product preparation error [Unknown]
  - Nausea [Unknown]
